FAERS Safety Report 6404539-9 (Version None)
Quarter: 2009Q4

REPORT INFORMATION
  Report Type: 
  Country: None (occurrence: None)
  Receive Date: 20091016
  Receipt Date: 20091005
  Transmission Date: 20100525
  Serious: Yes (Disabling)
  Sender: FDA-Public Use
  Company Number: PHEH2009US12965

PATIENT
  Sex: Male
  Weight: 97.506 kg

DRUGS (7)
  1. ZOMETA [Suspect]
     Indication: MULTIPLE MYELOMA
     Dosage: 4 MG EVERY MONTH
     Route: 042
     Dates: start: 20080307, end: 20090722
  2. AREDIA [Suspect]
     Indication: MULTIPLE MYELOMA
     Dosage: 90 MG EVERY MONTH
     Route: 042
     Dates: start: 20070404, end: 20080208
  3. REVLIMID [Concomitant]
     Dosage: 10 MG
     Route: 048
  4. COUMADIN [Concomitant]
     Dosage: 5 MG
     Route: 048
  5. PROZAC [Concomitant]
     Dosage: 20 MG
     Route: 048
  6. HYDROCODONE [Concomitant]
     Dosage: 5/500 MG
     Route: 048
  7. RESTORIL [Concomitant]

REACTIONS (4)
  - BONE DISORDER [None]
  - GINGIVAL EROSION [None]
  - IMPAIRED HEALING [None]
  - OSTEONECROSIS [None]
